FAERS Safety Report 7026868-0 (Version None)
Quarter: 2010Q4

REPORT INFORMATION
  Report Type: 
  Country: None (occurrence: None)
  Receive Date: 20101004
  Receipt Date: 20100929
  Transmission Date: 20110411
  Serious: Yes (Hospitalization)
  Sender: FDA-Public Use
  Company Number: A0835958A

PATIENT
  Age: 64 Year
  Sex: Female

DRUGS (11)
  1. AVANDIA [Suspect]
     Dosage: 8MG PER DAY
     Route: 048
     Dates: start: 20040101, end: 20070701
  2. ADVAIR DISKUS 100/50 [Concomitant]
  3. ALBUTEROL [Concomitant]
  4. FLONASE [Concomitant]
  5. GEMFIBROZIL [Concomitant]
  6. LISINOPRIL [Concomitant]
  7. LORATADINE [Concomitant]
  8. METFORMIN [Concomitant]
  9. NORVASC [Concomitant]
  10. PREMARIN [Concomitant]
  11. PROTONIX [Concomitant]

REACTIONS (4)
  - CARDIAC DISORDER [None]
  - CARDIAC FAILURE CONGESTIVE [None]
  - CORONARY ARTERY DISEASE [None]
  - MULTIPLE FRACTURES [None]
